FAERS Safety Report 7311346-1 (Version None)
Quarter: 2011Q1

REPORT INFORMATION
  Report Type: 
  Country: None (occurrence: None)
  Receive Date: 20110224
  Receipt Date: 20110218
  Transmission Date: 20110831
  Serious: Yes (Other)
  Sender: FDA-Public Use
  Company Number: DE-SHIRE-SPV1-2011-00289

PATIENT
  Sex: Female
  Weight: 78 kg

DRUGS (3)
  1. METHYLPHENIDATE - SLOW RELEASE [Suspect]
     Indication: PRODUCT USED FOR UNKNOWN INDICATION
     Dosage: UNK, OTHER
  2. THOMAPYRIN                         /00391201/ [Suspect]
     Indication: PRODUCT USED FOR UNKNOWN INDICATION
     Dosage: 3 DF, UNKNOWN
  3. EQUASYM RETARD [Suspect]
     Indication: PRODUCT USED FOR UNKNOWN INDICATION
     Dosage: 30 MG, ONE DOSE
     Route: 048

REACTIONS (3)
  - SUICIDE ATTEMPT [None]
  - RESTLESSNESS [None]
  - MULTIPLE DRUG OVERDOSE INTENTIONAL [None]
